FAERS Safety Report 25768286 (Version 1)
Quarter: 2025Q3

REPORT INFORMATION
  Report Type: Spontaneous
  Country: US (occurrence: US)
  Receive Date: 20250905
  Receipt Date: 20250905
  Transmission Date: 20251021
  Serious: No
  Sender: DOMPE FARMACEUTICI
  Company Number: US-FARMAPROD-202506-2011

PATIENT
  Age: 72 Year
  Sex: Female
  Weight: 92.53 kg

DRUGS (2)
  1. OXERVATE [Suspect]
     Active Substance: CENEGERMIN-BKBJ
     Indication: Neurotrophic keratopathy
     Route: 047
     Dates: start: 20250611
  2. OXERVATE [Suspect]
     Active Substance: CENEGERMIN-BKBJ
     Indication: Hypoaesthesia eye

REACTIONS (2)
  - Eye pain [Not Recovered/Not Resolved]
  - Periorbital pain [Not Recovered/Not Resolved]

NARRATIVE: CASE EVENT DATE: 20250613
